FAERS Safety Report 4845147-0 (Version None)
Quarter: 2005Q4

REPORT INFORMATION
  Report Type: 
  Country: None (occurrence: None)
  Receive Date: 20051205
  Receipt Date: 20051124
  Transmission Date: 20060501
  Serious: Yes (Hospitalization)
  Sender: FDA-Public Use
  Company Number: DE-ROCHE-426253

PATIENT
  Sex: Female

DRUGS (3)
  1. CELLCEPT [Suspect]
     Route: 065
  2. MIRTAZAPINE [Suspect]
     Indication: DEPRESSION
     Route: 065
  3. SANDIMMUNE [Concomitant]

REACTIONS (4)
  - AGRANULOCYTOSIS [None]
  - CYTOMEGALOVIRUS INFECTION [None]
  - EPSTEIN-BARR VIRUS INFECTION [None]
  - LEUKOENCEPHALOPATHY [None]
